FAERS Safety Report 10452134 (Version 2)
Quarter: 2014Q4

REPORT INFORMATION
  Report Type: Spontaneous
  Country: IT (occurrence: None)
  Receive Date: 20140911
  Receipt Date: 20141003
  Transmission Date: 20150528
  Serious: Yes (Death, Hospitalization)
  Sender: FDA-Public Use
  Company Number: KAD201409-001075

PATIENT
  Age: 66 Year
  Sex: Female

DRUGS (10)
  1. CITALOPRAM [Concomitant]
     Active Substance: CITALOPRAM HYDROBROMIDE
  2. LAMIVUDINE (LAMIVUDINE) (LAMIVUDINE) [Concomitant]
  3. SOFOSBUVIR (SOFOSBUVIR) [Suspect]
     Active Substance: SOFOSBUVIR
     Indication: CHRONIC HEPATITIS C
     Route: 048
     Dates: start: 20140321, end: 20140716
  4. PREDNISONE. [Concomitant]
     Active Substance: PREDNISONE
  5. CLONIDINE (CLONIDINE) (CLONIDINE) [Concomitant]
     Active Substance: CLONIDINE
  6. MYCOPHENOLATE MOFETIL. [Concomitant]
     Active Substance: MYCOPHENOLATE MOFETIL
  7. RIFAXIMIN (RIFAXIMN) (RIFAXIMIN) [Concomitant]
  8. FUROSEMIDE (FUORSEMIDE) (FUROSEMIDE) [Concomitant]
  9. RIBAVIRIN. [Suspect]
     Active Substance: RIBAVIRIN
     Indication: CHRONIC HEPATITIS C
     Dosage: 800 MG (400 MG TWICE DAILY)
     Route: 048
     Dates: start: 20140321, end: 20140716
  10. LACTULOSE (LACTULOSE) (LACTULOSE) [Concomitant]

REACTIONS (5)
  - Decreased appetite [None]
  - Weight decreased [None]
  - Septic shock [None]
  - Staphylococcal sepsis [None]
  - Acinetobacter test positive [None]

NARRATIVE: CASE EVENT DATE: 20140716
